FAERS Safety Report 5202866-4 (Version None)
Quarter: 2006Q4

REPORT INFORMATION
  Report Type: 
  Country: None (occurrence: None)
  Receive Date: 20061016
  Receipt Date: 20060804
  Transmission Date: 20070319
  Serious: No
  Sender: FDA-Public Use
  Company Number: 2006SP002918

PATIENT
  Sex: Male

DRUGS (8)
  1. LUNESTA [Suspect]
     Indication: INSOMNIA
     Dosage: 2 MG; HS; ORAL; SEE IMAGE
     Route: 048
     Dates: start: 20060101, end: 20060101
  2. LUNESTA [Suspect]
     Indication: INSOMNIA
     Dosage: 2 MG; HS; ORAL; SEE IMAGE
     Route: 048
     Dates: start: 20060101
  3. LITHIUM CARBONATE [Concomitant]
  4. LAMOTRIGINE [Concomitant]
  5. CYMBALTA [Concomitant]
  6. PROVIGIL [Concomitant]
  7. ASPIRIN [Concomitant]
  8. TAMSULOSIN HCL [Concomitant]

REACTIONS (2)
  - DRUG EFFECT DECREASED [None]
  - INSOMNIA [None]
